FAERS Safety Report 25080779 (Version 1)
Quarter: 2025Q1

REPORT INFORMATION
  Report Type: Spontaneous
  Country: GB (occurrence: GB)
  Receive Date: 20250315
  Receipt Date: 20250315
  Transmission Date: 20250409
  Serious: Yes (Other)
  Sender: AUROBINDO
  Company Number: GB-MHRA-MED-202502280900443840-QNYTD

PATIENT
  Age: 62 Year
  Sex: Male
  Weight: 83 kg

DRUGS (1)
  1. ROPINIROLE [Suspect]
     Active Substance: ROPINIROLE
     Indication: Product used for unknown indication
     Route: 065

REACTIONS (2)
  - Medication error [Unknown]
  - Condition aggravated [Recovered/Resolved]
